FAERS Safety Report 8300591-4 (Version None)
Quarter: 2012Q2

REPORT INFORMATION
  Report Type: 
  Country: None (occurrence: None)
  Receive Date: 20120417
  Receipt Date: 20120410
  Transmission Date: 20120825
  Serious: Yes (Other)
  Sender: FDA-Public Use
  Company Number: 2011AP000369

PATIENT
  Age: 132 Month
  Sex: Male
  Weight: 24.8 kg

DRUGS (3)
  1. FLUTICASONE PROPIONATE [Suspect]
     Indication: ASTHMA
     Dosage: 88 UG;BID 220 UG;BID
  2. LORATADINE [Concomitant]
  3. MONTELUKAST [Concomitant]

REACTIONS (4)
  - FAILURE TO THRIVE [None]
  - CUSHING'S SYNDROME [None]
  - ADRENAL INSUFFICIENCY [None]
  - IATROGENIC INJURY [None]
